FAERS Safety Report 8129121-7 (Version None)
Quarter: 2012Q1

REPORT INFORMATION
  Report Type: 
  Country: None (occurrence: None)
  Receive Date: 20120210
  Receipt Date: 20120203
  Transmission Date: 20120608
  Serious: Yes (Life-Threatening, Other)
  Sender: FDA-Public Use
  Company Number: FR-ROXANE LABORATORIES, INC.-2012-RO-00598RO

PATIENT
  Age: 58 Year
  Sex: Female

DRUGS (3)
  1. CORTICOSTEROIDS [Suspect]
     Indication: RHEUMATOID ARTHRITIS
  2. HUMIRA [Suspect]
     Indication: RHEUMATOID ARTHRITIS
  3. METHOTREXATE [Suspect]
     Indication: RHEUMATOID ARTHRITIS

REACTIONS (4)
  - PNEUMOCYSTIS JIROVECI PNEUMONIA [None]
  - NORMOCHROMIC NORMOCYTIC ANAEMIA [None]
  - LYMPHOPENIA [None]
  - DISSEMINATED TUBERCULOSIS [None]
